FAERS Safety Report 6819760-5 (Version None)
Quarter: 2010Q3

REPORT INFORMATION
  Report Type: 
  Country: None (occurrence: None)
  Receive Date: 20100707
  Receipt Date: 20100622
  Transmission Date: 20110219
  Serious: Yes (Other)
  Sender: FDA-Public Use
  Company Number: PHHY2010US41809

PATIENT
  Sex: Female

DRUGS (2)
  1. RECLAST [Suspect]
     Dosage: UNK
     Dates: start: 20100101
  2. ANALGESICS [Suspect]

REACTIONS (17)
  - ABASIA [None]
  - ANXIETY [None]
  - BACK PAIN [None]
  - CONTUSION [None]
  - GINGIVAL PAIN [None]
  - HAND DEFORMITY [None]
  - INSOMNIA [None]
  - JOINT SWELLING [None]
  - LIMB DEFORMITY [None]
  - LIMB DISCOMFORT [None]
  - LIMB INJURY [None]
  - MUSCULOSKELETAL STIFFNESS [None]
  - OEDEMA PERIPHERAL [None]
  - PAIN [None]
  - PAIN IN EXTREMITY [None]
  - PAIN IN JAW [None]
  - SKIN DISCOLOURATION [None]
